FAERS Safety Report 5947908-3 (Version None)
Quarter: 2008Q4

REPORT INFORMATION
  Report Type: 
  Country: None (occurrence: None)
  Receive Date: 20081111
  Receipt Date: 20080813
  Transmission Date: 20090506
  Serious: No
  Sender: FDA-Public Use
  Company Number: A0742427A

PATIENT
  Sex: Female

DRUGS (1)
  1. TREXIMET [Suspect]
     Indication: MIGRAINE
     Dosage: 85MG UNKNOWN
     Route: 048
     Dates: start: 20080801

REACTIONS (1)
  - DRUG SCREEN POSITIVE [None]
